FAERS Safety Report 22208779 (Version 1)
Quarter: 2023Q2

REPORT INFORMATION
  Report Type: Spontaneous
  Country: US (occurrence: US)
  Receive Date: 20230413
  Receipt Date: 20230413
  Transmission Date: 20230721
  Serious: Yes (Other)
  Sender: FDA-Public Use
  Company Number: US-JNJFOC-20190705349

PATIENT
  Sex: Female
  Weight: 70.370 kg

DRUGS (2)
  1. IMODIUM MULTI-SYMPTOM RELIEF [Suspect]
     Active Substance: DIMETHICONE\LOPERAMIDE HYDROCHLORIDE
     Indication: Irritable bowel syndrome
     Dosage: 1 TO 2 CAPLETS WITH EACH USAGE ONCE TO TWICE A DAY - TWICE A WEEK - SOMETIMES MORE OFTEN
     Route: 048
     Dates: end: 20190703
  2. IMODIUM A-D [Suspect]
     Active Substance: LOPERAMIDE HYDROCHLORIDE
     Indication: Irritable bowel syndrome
     Route: 065

REACTIONS (3)
  - Foreign body in throat [Recovered/Resolved]
  - Product use complaint [Recovered/Resolved]
  - Drug ineffective [Unknown]

NARRATIVE: CASE EVENT DATE: 20190703
